FAERS Safety Report 7651699-8 (Version None)
Quarter: 2011Q3

REPORT INFORMATION
  Report Type: 
  Country: None (occurrence: None)
  Receive Date: 20110802
  Receipt Date: 20110718
  Transmission Date: 20111222
  Serious: Yes (Hospitalization)
  Sender: FDA-Public Use
  Company Number: US-WATSON-2011-11516

PATIENT
  Age: 54 Year
  Sex: Female

DRUGS (4)
  1. DIVALPROEX SODIUM [Suspect]
     Indication: CONVULSION
     Dosage: 750 MG, QHS
     Route: 048
  2. DIVALPROEX SODIUM [Suspect]
     Dosage: 1500 MG, OVER 1 HOUR
     Route: 042
  3. DORIPENEM MONOHYDRATE [Suspect]
     Indication: PNEUMONIA ASPIRATION
     Dosage: 500 MG, Q8H
     Route: 042
  4. VALPROIC ACID [Suspect]
     Indication: CONVULSION
     Dosage: 250 MG, Q8H SYRUP THROUGH NASOGASTRIC TUBE

REACTIONS (3)
  - DRUG INTERACTION [None]
  - CHRONIC OBSTRUCTIVE PULMONARY DISEASE [None]
  - DRUG LEVEL DECREASED [None]
